FAERS Safety Report 7652155-3 (Version None)
Quarter: 2011Q3

REPORT INFORMATION
  Report Type: 
  Country: None (occurrence: None)
  Receive Date: 20110803
  Receipt Date: 20110725
  Transmission Date: 20111222
  Serious: Yes (Death, Life-Threatening, Other)
  Sender: FDA-Public Use
  Company Number: US-BAYER-2011-011685

PATIENT
  Age: 66 Year
  Sex: Male
  Weight: 95.238 kg

DRUGS (37)
  1. TRASYLOL [Suspect]
     Indication: AORTIC VALVE REPLACEMENT
     Dosage: 140 MG, LOADING DOSE
     Route: 042
     Dates: start: 19970117
  2. TRASYLOL [Suspect]
     Dosage: 420 MG, SURGICAL DOSE
     Route: 042
     Dates: start: 19970117
  3. PANCURONIUM [Concomitant]
     Dosage: 20 MG, UNK
     Route: 042
     Dates: start: 19970117, end: 19970117
  4. HEPARIN [Concomitant]
     Dosage: 60 ML, UNK
     Route: 042
     Dates: start: 19970117, end: 19970117
  5. ZAROXOLYN [Concomitant]
     Dosage: 10 MG, UNK
     Route: 042
     Dates: start: 19970117, end: 19970117
  6. LASIX [Concomitant]
     Dosage: 80 MG, UNK
     Route: 048
  7. DOBUTAMINE HCL [Concomitant]
     Dosage: 4 MG, UNK
     Route: 042
     Dates: start: 19970117
  8. ATENOLOL [Concomitant]
     Dosage: 5 MG, UNK
     Route: 048
  9. COUMADIN [Concomitant]
     Dosage: 5 MG, UNK
     Route: 048
  10. CEFAZOLIN [Concomitant]
     Dosage: 2000 MG, UNK
     Route: 042
     Dates: start: 19970117, end: 19970117
  11. HEPARIN [Concomitant]
     Dosage: 45000 U, UNK
     Route: 042
     Dates: start: 19970117, end: 19970117
  12. PROTAMINE [Concomitant]
     Dosage: 310 MG, UNK
     Route: 042
     Dates: start: 19970117, end: 19970117
  13. DOPAMINE HCL [Concomitant]
     Dosage: 2 MG, UNK
     Route: 042
     Dates: start: 19970117
  14. MANNITOL [Concomitant]
     Dosage: 300 ML, UNK
     Route: 042
     Dates: start: 19970117, end: 19970117
  15. CAPTOPRIL [Concomitant]
     Dosage: 6.25 MG, UNK
     Route: 048
  16. ETOMIDATE [Concomitant]
     Dosage: 8 MG, UNK
     Route: 042
     Dates: start: 19970117, end: 19970117
  17. FUROSEMIDE [Concomitant]
     Dosage: 120 MG, UNK
     Route: 042
     Dates: start: 19970117, end: 19970117
  18. CALCIUM CHLORIDE [Concomitant]
     Dosage: 1500 MG, UNK
     Route: 042
     Dates: start: 19970117, end: 19970117
  19. EPINEPHRINE [Concomitant]
     Dosage: 0.15 UNITS UNSPECIFIED
     Route: 042
     Dates: start: 19970117
  20. PLASMALYTE 56 IN 5% DEXTROSE [Concomitant]
     Dosage: 500 ML, UNK
     Route: 042
     Dates: start: 19970117, end: 19970117
  21. INSULIN [Concomitant]
     Dosage: 10 U, UNK
     Route: 042
     Dates: start: 19970117, end: 19970117
  22. NITRO-DUR [Concomitant]
     Dosage: 0.4 MG, UNK
     Route: 048
  23. HALOPERIDOL [Concomitant]
     Dosage: 3 MG, UNK
     Route: 048
  24. LANOXIN [Concomitant]
     Dosage: 0.125 MG, UNK
     Route: 048
  25. PEPCID [Concomitant]
     Dosage: 20 MG, UNK
     Route: 048
  26. BUMEX [Concomitant]
     Dosage: 2 MG, UNK
     Route: 042
     Dates: start: 19970117, end: 19970117
  27. ACETYLSALICYLIC ACID SRT [Concomitant]
     Dosage: 81 MG, UNK
     Route: 048
  28. GLUCOTROL [Concomitant]
     Dosage: 10 MG, UNK
     Route: 048
  29. MIDAZOLAM HCL [Concomitant]
     Dosage: 7 MG, UNK
     Route: 011
     Dates: start: 19970117, end: 19970117
  30. COZAAR [Concomitant]
     Dosage: 30 MG, UNK
     Route: 048
  31. INSULIN [Concomitant]
     Route: 048
  32. CARDIOPLEGIA [Concomitant]
     Dosage: 2200 ML, UNK
     Route: 042
     Dates: start: 19970117, end: 19970117
  33. RED BLOOD CELLS [Concomitant]
     Dosage: 750 ML, UNK
     Route: 042
     Dates: start: 19970117, end: 19970117
  34. ALBUMIN (HUMAN) [Concomitant]
     Dosage: 500 ML, UNK
     Route: 042
     Dates: start: 19970117, end: 19970117
  35. DEMADEX [Concomitant]
     Dosage: 20 MG, UNK
     Route: 048
  36. POTASSIUM CHLORIDE [Concomitant]
     Route: 048
  37. FENTANYL [Concomitant]
     Dosage: 80 MG, UNK
     Route: 042
     Dates: start: 19970117, end: 19970117

REACTIONS (11)
  - UNEVALUABLE EVENT [None]
  - RENAL FAILURE [None]
  - RENAL INJURY [None]
  - EMOTIONAL DISTRESS [None]
  - MULTI-ORGAN FAILURE [None]
  - ANXIETY [None]
  - FEAR [None]
  - RENAL IMPAIRMENT [None]
  - DEATH [None]
  - STRESS [None]
  - PAIN [None]
